FAERS Safety Report 23960942 (Version 1)
Quarter: 2024Q2

REPORT INFORMATION
  Report Type: Spontaneous
  Country: US (occurrence: US)
  Receive Date: 20240611
  Receipt Date: 20240611
  Transmission Date: 20240716
  Serious: No
  Sender: FDA-Public Use
  Company Number: US-STI Pharma LLC-2158006

PATIENT
  Age: 88 Year
  Sex: Male

DRUGS (3)
  1. ETHAMBUTOL HYDROCHLORIDE [Suspect]
     Active Substance: ETHAMBUTOL HYDROCHLORIDE
     Dates: start: 202305, end: 202308
  2. AZITHROMYCIN [Concomitant]
     Active Substance: AZITHROMYCIN
     Dates: start: 202305, end: 202308
  3. RIFABUTIN [Concomitant]
     Active Substance: RIFABUTIN
     Dates: start: 202305, end: 202308

REACTIONS (3)
  - Fatigue [Unknown]
  - Paraesthesia [Unknown]
  - Decreased appetite [Unknown]
